FAERS Safety Report 8392615-3 (Version None)
Quarter: 2012Q2

REPORT INFORMATION
  Report Type: 
  Country: None (occurrence: None)
  Receive Date: 20120529
  Receipt Date: 20120522
  Transmission Date: 20120825
  Serious: Yes (Other)
  Sender: FDA-Public Use
  Company Number: PHHY2012US045097

PATIENT
  Age: 13 Year
  Sex: Female

DRUGS (3)
  1. CALCIUM [Concomitant]
  2. VITAMIN D [Concomitant]
  3. VALPROIC ACID [Suspect]
     Indication: EPILEPSY

REACTIONS (5)
  - FEMUR FRACTURE [None]
  - HIP FRACTURE [None]
  - BONE DENSITY DECREASED [None]
  - FRACTURE [None]
  - TIBIA FRACTURE [None]
